FAERS Safety Report 15650292 (Version 1)
Quarter: 2018Q4

REPORT INFORMATION
  Report Type: Spontaneous
  Country: TW (occurrence: TW)
  Receive Date: 20181123
  Receipt Date: 20181123
  Transmission Date: 20190205
  Serious: Yes (Hospitalization, Other)
  Sender: FDA-Public Use
  Company Number: TW-AXELLIA-002060

PATIENT
  Age: 62 Year
  Sex: Male

DRUGS (6)
  1. FLUCONAZOLE. [Concomitant]
     Active Substance: FLUCONAZOLE
     Indication: PROPHYLAXIS
  2. TACROLIMUS. [Interacting]
     Active Substance: TACROLIMUS
     Indication: IMMUNOSUPPRESSION
  3. TACROLIMUS. [Interacting]
     Active Substance: TACROLIMUS
     Indication: IMMUNOSUPPRESSION
     Dosage: 0.5 MG, TWICE WEEKLY, 86% REDUCTION?ALSO 1 MG DAILY
  4. MYCOPHENOLIC ACID. [Concomitant]
     Active Substance: MYCOPHENOLIC ACID
     Indication: IMMUNOSUPPRESSANT DRUG THERAPY
  5. VORICONAZOLE. [Suspect]
     Active Substance: VORICONAZOLE
     Indication: BRONCHOPULMONARY ASPERGILLOSIS
  6. TACROLIMUS. [Interacting]
     Active Substance: TACROLIMUS
     Indication: IMMUNOSUPPRESSION
     Dosage: TWICE WEEKLY, 86% REDUCTION

REACTIONS (5)
  - Transplant rejection [Recovered/Resolved]
  - Drug interaction [Unknown]
  - Hepatotoxicity [Recovered/Resolved]
  - Drug level below therapeutic [Recovered/Resolved]
  - Nephropathy toxic [Recovered/Resolved]
